FAERS Safety Report 10066342 (Version 2)
Quarter: 2014Q2

REPORT INFORMATION
  Report Type: Spontaneous
  Country: US (occurrence: US)
  Receive Date: 20140408
  Receipt Date: 20140605
  Transmission Date: 20141212
  Serious: No
  Sender: FDA-Public Use
  Company Number: US-TEVA-470522USA

PATIENT
  Age: 67 Year
  Sex: Female
  Weight: 74 kg

DRUGS (11)
  1. NUVIGIL [Suspect]
     Indication: SLEEP APNOEA SYNDROME
     Dosage: UNSPECIFIED, CUT IN HALF
     Dates: start: 201306, end: 201403
  2. NUVIGIL [Suspect]
     Indication: SOMNOLENCE
  3. PERCOCET [Concomitant]
     Indication: PAIN
  4. PRISTIQ [Concomitant]
  5. PRILOSEC [Concomitant]
     Indication: GASTROOESOPHAGEAL REFLUX DISEASE
  6. CLONAZEPAM [Concomitant]
     Indication: ANXIETY
  7. SIMVASTATIN [Concomitant]
     Indication: BLOOD CHOLESTEROL INCREASED
  8. METOCLOPRAMIDE [Concomitant]
     Indication: GASTRIC HYPOMOTILITY
  9. ECOTRIN LOW STRENGTH [Concomitant]
  10. CALCIUM [Concomitant]
     Indication: NUTRITIONAL SUPPLEMENTATION
  11. ESTRADIOL [Concomitant]
     Indication: HORMONE REPLACEMENT THERAPY

REACTIONS (1)
  - Headache [Recovered/Resolved]
